FAERS Safety Report 6031987-1 (Version None)
Quarter: 2009Q1

REPORT INFORMATION
  Report Type: 
  Country: None (occurrence: None)
  Receive Date: 20090107
  Receipt Date: 20081222
  Transmission Date: 20090719
  Serious: Yes (Other)
  Sender: FDA-Public Use
  Company Number: 2009AL000018

PATIENT
  Age: 14 Year
  Sex: Female

DRUGS (5)
  1. CARBAMAZEPINE [Suspect]
  2. GABAPENTIN [Suspect]
     Indication: NEURALGIA
     Dosage: 100 MG; QD; PO
     Route: 048
  3. AMITRIPTYLINE HCL [Concomitant]
  4. IBUPROFEN TABLETS [Concomitant]
  5. ACETAMINOPHEN [Concomitant]

REACTIONS (2)
  - CHEST PAIN [None]
  - DYSPNOEA [None]
